FAERS Safety Report 15883292 (Version 3)
Quarter: 2019Q1

REPORT INFORMATION
  Report Type: Spontaneous
  Country: DE (occurrence: DE)
  Receive Date: 20190129
  Receipt Date: 20190315
  Transmission Date: 20190417
  Serious: Yes (Hospitalization, Other)
  Sender: FDA-Public Use
  Company Number: DE-ACCORD-103260

PATIENT
  Age: 71 Year
  Sex: Male
  Weight: 125 kg

DRUGS (14)
  1. SEVREDOL [Suspect]
     Active Substance: MORPHINE
     Indication: PAIN
     Dosage: AS NEEDED (MAXIMUM TWICE A DAY)
     Route: 048
  2. ASS 1 A PHARMA [Concomitant]
     Active Substance: ASPIRIN
     Dosage: 100 MG, 1X/DAY
     Route: 048
  3. SIMVA ARISTO [Concomitant]
     Active Substance: SIMVASTATIN
     Dosage: 40 MG, QD (40 MG, 1X/DAY)
     Route: 048
     Dates: start: 2009
  4. MORPHINE SULFATE. [Suspect]
     Active Substance: MORPHINE SULFATE
     Indication: PRODUCT USED FOR UNKNOWN INDICATION
     Dosage: 300 MG, QD (100 MG, 3X/DAY)
     Route: 048
     Dates: start: 20070101
  5. AMITRIPTYLINE [Suspect]
     Active Substance: AMITRIPTYLINE
     Indication: NEURALGIA
     Dosage: 50 MG, QD (50 MG, 1X/DAY)
     Route: 048
     Dates: start: 20161123, end: 20161126
  6. PANTOZOL [Concomitant]
     Active Substance: PANTOPRAZOLE SODIUM
     Dosage: 40 MG, 2X/DAY
     Route: 048
  7. MORPHIN AL [Suspect]
     Active Substance: MORPHINE SULFATE
     Indication: PRODUCT USED FOR UNKNOWN INDICATION
     Dosage: 120 MG, QD (60 MG, 2X/DAY)
     Route: 048
     Dates: start: 20070101
  8. PANTOPRAZOLE [Concomitant]
     Active Substance: PANTOPRAZOLE
     Dosage: 80 MG, QD (40 MG, 2X/DAY), 40 MG DOSE ALSO RECEIVED.
     Route: 048
  9. MOVICOL [Concomitant]
     Active Substance: POLYETHYLENE GLYCOL 3350\POTASSIUM CHLORIDE\SODIUM BICARBONATE\SODIUM CHLORIDE
     Dosage: 2 DF, UNK
     Route: 048
  10. RAMILICH [Concomitant]
     Active Substance: RAMIPRIL
     Indication: PRODUCT USED FOR UNKNOWN INDICATION
     Dosage: 2.5 MG, QD (2.5 MG, 1X/DAY)
     Route: 048
     Dates: start: 2009
  11. LYRICA [Suspect]
     Active Substance: PREGABALIN
     Indication: NEURALGIA
     Dosage: (25 MG, 2X/ DAY), 100 MG:25-NOV-2016,24-NOV-2016
     Route: 048
     Dates: start: 20161123
  12. TRANSTEC [Concomitant]
     Active Substance: BUPRENORPHINE
     Dosage: (70 UG/H)
     Route: 062
  13. TORASEMID ABZ [Concomitant]
     Dosage: 25 MG, QD, 35 NOT APPL,
     Route: 048
  14. RAMIPRIL. [Concomitant]
     Active Substance: RAMIPRIL
     Dosage: 2.5 NOT APPL,
     Route: 048

REACTIONS (9)
  - Visual impairment [Recovered/Resolved]
  - Disturbance in attention [Recovered/Resolved]
  - Weight increased [Recovered/Resolved]
  - Depressed level of consciousness [Recovered/Resolved]
  - Dizziness [Recovered/Resolved]
  - Overdose [Unknown]
  - Fatigue [Recovered/Resolved]
  - Somnolence [Recovered/Resolved]
  - Fall [Unknown]

NARRATIVE: CASE EVENT DATE: 20161123
